FAERS Safety Report 20462321 (Version 2)
Quarter: 2022Q1

REPORT INFORMATION
  Report Type: Other
  Country: US (occurrence: None)
  Receive Date: 20220211
  Receipt Date: 20220215
  Transmission Date: 20220423
  Serious: No
  Sender: FDA-Public Use
  Company Number: US-ROCHE-3021235

PATIENT
  Sex: Male

DRUGS (1)
  1. OCREVUS [Suspect]
     Active Substance: OCRELIZUMAB
     Indication: Relapsing multiple sclerosis
     Dosage: 300MG DAY 1 AND DAY 15 LATER 600MG EVERY 6 MONTHS, DATE OF TREATMENT: 17/JUN/2021, 07/JUL/2021, RECE
     Route: 042

REACTIONS (1)
  - COVID-19 [Unknown]
